FAERS Safety Report 9447876 (Version 5)
Quarter: 2014Q1

REPORT INFORMATION
  Report Type: Report from Study
  Country: JP (occurrence: JP)
  Receive Date: 20130808
  Receipt Date: 20140217
  Transmission Date: 20141002
  Serious: Yes (Life-Threatening)
  Sender: FDA-Public Use
  Company Number: JP-009507513-1308JPN002878

PATIENT
  Age: 60 Year
  Sex: Male
  Weight: 47 kg

DRUGS (9)
  1. ASENAPINE MALEATE-SCHIZOPHRENIA [Suspect]
     Indication: SCHIZOPHRENIA
     Dosage: 5 MG, BID, OPEN LABEL
     Route: 060
     Dates: start: 20130613, end: 20140116
  2. OLANZAPINE [Concomitant]
     Indication: SCHIZOPHRENIA
     Dosage: 20 MG, QD, FORMULATION: POR
     Route: 048
     Dates: start: 20130513
  3. LEVOMEPROMAZINE MALEATE [Concomitant]
     Indication: SCHIZOPHRENIA
     Dosage: 50 MG, BID, FORMULATION: POR
     Route: 048
     Dates: start: 20130426
  4. FLUNITRAZEPAM [Concomitant]
     Indication: INSOMNIA
     Dosage: 2 MG, QD
     Route: 048
     Dates: start: 20130413
  5. REBAMIPIDE [Concomitant]
     Indication: GASTROINTESTINAL MUCOSAL DISORDER
     Dosage: 100 MG, TID, FORMULATION: POR
     Route: 048
     Dates: start: 20130426
  6. HALOPERIDOL [Concomitant]
     Indication: SCHIZOPHRENIA
     Dosage: 50 MG, REGULAR BASIS
     Route: 030
     Dates: start: 20130402
  7. VEGETAMIN [Concomitant]
     Indication: SCHIZOPHRENIA
     Dosage: 3 DF, QD
     Route: 048
     Dates: start: 20130513
  8. VEGETAMIN [Concomitant]
     Dosage: 1 DF, TID
     Route: 048
     Dates: start: 20130531
  9. NITRAZEPAM [Concomitant]
     Indication: INSOMNIA
     Dosage: 10 MG, QD, FORMULATION: POR
     Route: 048
     Dates: start: 20130724, end: 20130726

REACTIONS (2)
  - Pneumonia aspiration [Recovered/Resolved]
  - Choking [Recovered/Resolved]
